FAERS Safety Report 15789005 (Version 1)
Quarter: 2019Q1

REPORT INFORMATION
  Report Type: Spontaneous
  Country: PL (occurrence: PL)
  Receive Date: 20190104
  Receipt Date: 20190104
  Transmission Date: 20190417
  Serious: Yes (Hospitalization, Other)
  Sender: FDA-Public Use
  Company Number: PL-INGENUS PHARMACEUTICALS, LLC-INF201812-001213

PATIENT
  Age: 70 Year
  Sex: Female
  Weight: 77 kg

DRUGS (6)
  1. ETOPOSIDE. [Concomitant]
     Active Substance: ETOPOSIDE
     Indication: LUNG NEOPLASM MALIGNANT
  2. CARBOPLATIN. [Suspect]
     Active Substance: CARBOPLATIN
     Indication: LUNG NEOPLASM MALIGNANT
  3. ETOPOSIDE. [Concomitant]
     Active Substance: ETOPOSIDE
  4. ETOPOSIDE. [Concomitant]
     Active Substance: ETOPOSIDE
  5. CISPLATIN. [Concomitant]
     Active Substance: CISPLATIN
     Indication: LUNG NEOPLASM MALIGNANT
  6. ADRENALIN [Concomitant]
     Active Substance: EPINEPHRINE

REACTIONS (2)
  - Acute myocardial infarction [Recovered/Resolved]
  - Cardiotoxicity [Recovered/Resolved]
